FAERS Safety Report 8848750 (Version 1)
Quarter: 2012Q4

REPORT INFORMATION
  Report Type: Spontaneous
  Country: FR (occurrence: None)
  Receive Date: 20121015
  Receipt Date: 20121015
  Transmission Date: 20130627
  Serious: Yes (Other)
  Sender: FDA-Public Use
  Company Number: DSA_60108_2012

PATIENT
  Age: 80 Year
  Sex: Male

DRUGS (2)
  1. XENAZINE [Suspect]
     Indication: CHOREA
  2. XENAZINE [Suspect]
     Indication: EXTRAPYRAMIDAL DISORDER

REACTIONS (2)
  - Epilepsy [None]
  - Sinus bradycardia [None]
